FAERS Safety Report 9719784 (Version 3)
Quarter: 2013Q4

REPORT INFORMATION
  Report Type: Spontaneous
  Country: US (occurrence: US)
  Receive Date: 20131128
  Receipt Date: 20131216
  Transmission Date: 20140711
  Serious: Yes (Hospitalization)
  Sender: FDA-Public Use
  Company Number: US-BEH-2013039036

PATIENT
  Sex: Female

DRUGS (1)
  1. PRIVIGEN [Suspect]
     Indication: CHRONIC INFLAMMATORY DEMYELINATING POLYRADICULONEUROPATHY
     Route: 042

REACTIONS (3)
  - Hypoaesthesia [Recovered/Resolved]
  - Headache [Recovered/Resolved]
  - Protein total [Recovered/Resolved]
